FAERS Safety Report 15238979 (Version 3)
Quarter: 2018Q4

REPORT INFORMATION
  Report Type: Spontaneous
  Country: US (occurrence: US)
  Receive Date: 20180803
  Receipt Date: 20181120
  Transmission Date: 20190204
  Serious: No
  Sender: FDA-Public Use
  Company Number: US-ASTRAZENECA-2018SE98649

PATIENT
  Age: 70 Year
  Sex: Female
  Weight: 83.9 kg

DRUGS (6)
  1. FASENRA [Suspect]
     Active Substance: BENRALIZUMAB
     Indication: ASTHMA
     Dosage: 30MG, EVERY FOUR WEEKS FOR THE FIRST THREE DOSES, FOLLOWED BY ONCE EVERY EIGHT WEEKS THEREAFTER
     Route: 058
     Dates: start: 20180726, end: 20180726
  2. CRESTOR [Suspect]
     Active Substance: ROSUVASTATIN CALCIUM
     Route: 048
  3. PROAIR HFA [Concomitant]
     Active Substance: ALBUTEROL SULFATE
     Indication: SUPPLEMENTATION THERAPY
  4. FASENRA [Suspect]
     Active Substance: BENRALIZUMAB
     Indication: ASTHMA
     Dosage: 30MG, EVERY FOUR WEEKS FOR THE FIRST THREE DOSES, FOLLOWED BY ONCE EVERY EIGHT WEEKS THEREAFTER
     Route: 058
     Dates: start: 20180726, end: 20180726
  5. ALBUTEROL. [Concomitant]
     Active Substance: ALBUTEROL
     Indication: MALAISE
  6. SYMBICORT [Suspect]
     Active Substance: BUDESONIDE\FORMOTEROL FUMARATE DIHYDRATE
     Indication: ASTHMA
     Dosage: 160/4.5 MCG TWO INHALATIONS, TWO TIMES A DAY
     Route: 055

REACTIONS (13)
  - Blood pressure decreased [Recovered/Resolved]
  - Gait disturbance [Recovering/Resolving]
  - Intentional product misuse [Not Recovered/Not Resolved]
  - Dyspnoea [Recovering/Resolving]
  - Speech disorder [Recovered/Resolved]
  - Hypertension [Not Recovered/Not Resolved]
  - Pallor [Unknown]
  - Adverse drug reaction [Recovering/Resolving]
  - Bronchitis [Recovering/Resolving]
  - Asthma [Unknown]
  - Hypotension [Unknown]
  - Asthenia [Recovering/Resolving]
  - Product use issue [Not Recovered/Not Resolved]

NARRATIVE: CASE EVENT DATE: 2018
